FAERS Safety Report 8951352 (Version 1)
Quarter: 2012Q4

REPORT INFORMATION
  Report Type: 
  Country: US (occurrence: US)
  Receive Date: 20121207
  Receipt Date: 20121207
  Transmission Date: 20130627
  Serious: Yes (Death, Other)
  Sender: FDA-Public Use
  Company Number: US-B.I. PHARMACEUTICALS,INC./RIDGEFIELD-2012-BI-02466GD

PATIENT
  Age: 7 None
  Sex: Female

DRUGS (8)
  1. BISACODYL [Suspect]
     Indication: CONSTIPATION
     Dosage: 10 mg
     Route: 054
  2. IPRATROPIUMBROMID [Suspect]
     Indication: DYSPNOEA
  3. ALBUTEROL [Suspect]
     Indication: DYSPNOEA
  4. FUROSEMIDE [Suspect]
     Dosage: 80 mg
     Route: 042
  5. CARVEDILOL [Suspect]
     Dosage: 6.25 mg
     Route: 048
  6. METRONIDAZOLE [Suspect]
     Indication: CLOSTRIDIAL INFECTION
     Dosage: 1500 mg
     Route: 042
  7. VANCOMYCIN [Suspect]
     Indication: CLOSTRIDIAL INFECTION
     Dosage: 2000 mg
  8. VANCOMYCIN [Suspect]
     Dosage: 2000 mg
     Route: 054

REACTIONS (8)
  - Multi-organ failure [Fatal]
  - Drug ineffective [Unknown]
  - Atrial fibrillation [None]
  - Mental status changes [None]
  - Acute respiratory failure [None]
  - Hypotension [None]
  - Renal impairment [None]
  - Clostridium difficile infection [None]
